FAERS Safety Report 4684696-5 (Version None)
Quarter: 2005Q2

REPORT INFORMATION
  Report Type: 
  Country: None (occurrence: None)
  Receive Date: 20050531
  Receipt Date: 20041203
  Transmission Date: 20051028
  Serious: Yes (Death, Other)
  Sender: FDA-Public Use
  Company Number: US_0412108933

PATIENT

DRUGS (1)
  1. ZYPREXA [Suspect]

REACTIONS (1)
  - DIABETIC KETOACIDOSIS [None]
